FAERS Safety Report 16069250 (Version 5)
Quarter: 2019Q2

REPORT INFORMATION
  Report Type: Report from Study
  Country: CO (occurrence: CO)
  Receive Date: 20190313
  Receipt Date: 20190509
  Transmission Date: 20190711
  Serious: Yes (Hospitalization)
  Sender: FDA-Public Use
  Company Number: PHHY2019CO040569

PATIENT
  Sex: Male
  Weight: 53 kg

DRUGS (4)
  1. LOSARTAN. [Suspect]
     Active Substance: LOSARTAN
     Indication: HYPERTENSION
     Dosage: 50 MG, QD
     Route: 048
  2. AFINITOR [Suspect]
     Active Substance: EVEROLIMUS
     Indication: RENAL CELL CARCINOMA
     Dosage: 10 MG, QD
     Route: 048
     Dates: start: 201807
  3. ACETAMINOPHEN AND CODEINE [Concomitant]
     Active Substance: ACETAMINOPHEN\CODEINE PHOSPHATE
     Indication: PAIN
     Dosage: 50 MG, (AS NECESSITY)
     Route: 048
  4. AFINITOR [Suspect]
     Active Substance: EVEROLIMUS
     Dosage: 10 MG, QD
     Route: 048
     Dates: start: 20181008, end: 201904

REACTIONS (13)
  - Mouth haemorrhage [Recovered/Resolved]
  - Feeling abnormal [Not Recovered/Not Resolved]
  - Depressed mood [Not Recovered/Not Resolved]
  - Yellow skin [Not Recovered/Not Resolved]
  - Drug ineffective [Unknown]
  - Haemoptysis [Unknown]
  - Blood urine present [Unknown]
  - Headache [Not Recovered/Not Resolved]
  - Cough [Unknown]
  - Asthenia [Not Recovered/Not Resolved]
  - Throat irritation [Unknown]
  - Haemoglobin decreased [Unknown]
  - Weight decreased [Unknown]
